FAERS Safety Report 4332655-4 (Version None)
Quarter: 2004Q1

REPORT INFORMATION
  Report Type: 
  Country: None (occurrence: None)
  Receive Date: 20040330
  Receipt Date: 20040317
  Transmission Date: 20041129
  Serious: Yes (Hospitalization)
  Sender: FDA-Public Use
  Company Number: 6007996

PATIENT
  Age: 54 Year
  Sex: Male

DRUGS (5)
  1. GLUCOPHAGE [Suspect]
     Indication: DRUG USE FOR UNKNOWN INDICATION
     Dosage: 2,00 DOSAGE
     Route: 048
     Dates: start: 20000218
  2. GLYBURIDE [Suspect]
     Indication: DIABETES MELLITUS
     Dosage: 3,00 DOSAGE
     Route: 048
     Dates: start: 20000203
  3. BIPROFENID [Suspect]
     Route: 048
     Dates: start: 20000208, end: 20000216
  4. GLUCOR   (ACARBOSE) [Suspect]
     Dosage: 3 DOSAGE FOR
     Route: 048
  5. DI-ANTALVIC [Suspect]
     Indication: CERVICAL ROOT PAIN
     Dates: end: 20040216

REACTIONS (11)
  - CERVICAL ROOT PAIN [None]
  - CHOLESTASIS [None]
  - DIARRHOEA [None]
  - DYSPNOEA EXERTIONAL [None]
  - HEPATIC STEATOSIS [None]
  - HEPATITIS [None]
  - HEPATOMEGALY [None]
  - HYPERCHOLESTEROLAEMIA [None]
  - HYPERGLYCAEMIA [None]
  - HYPERTRIGLYCERIDAEMIA [None]
  - POLLAKIURIA [None]
